FAERS Safety Report 11475312 (Version 1)
Quarter: 2015Q3

REPORT INFORMATION
  Report Type: Spontaneous
  Country: US (occurrence: US)
  Receive Date: 20150909
  Receipt Date: 20150909
  Transmission Date: 20151125
  Serious: Yes (Other)
  Sender: FDA-Public Use
  Company Number: US-ASTRAZENECA-2015SE86163

PATIENT
  Age: 51 Year
  Sex: Female

DRUGS (14)
  1. HUMULIN NOS [Concomitant]
     Active Substance: INSULIN HUMAN
  2. CLONAZEPAM. [Concomitant]
     Active Substance: CLONAZEPAM
  3. HYDROCODONE 10-325 [Concomitant]
     Dosage: THREE TIMES A DAY
  4. DULOXETINE HYDROCHLORIDE. [Concomitant]
     Active Substance: DULOXETINE HYDROCHLORIDE
  5. TRAZODONE [Concomitant]
     Active Substance: TRAZODONE HYDROCHLORIDE
  6. LEVOTHYROXINE. [Concomitant]
     Active Substance: LEVOTHYROXINE
  7. MECLIZINE [Concomitant]
     Active Substance: MECLIZINE\MECLIZINE HYDROCHLORIDE
  8. BYDUREON [Suspect]
     Active Substance: EXENATIDE
     Indication: TYPE 2 DIABETES MELLITUS
     Route: 058
     Dates: start: 201507
  9. FARXIGA [Suspect]
     Active Substance: DAPAGLIFLOZIN PROPANEDIOL
     Route: 048
  10. ATENOLOL. [Suspect]
     Active Substance: ATENOLOL
     Route: 048
  11. GLIMEPIRIDE. [Concomitant]
     Active Substance: GLIMEPIRIDE
  12. WARFARIN [Concomitant]
     Active Substance: WARFARIN
  13. PROCHLORPERAZINE. [Concomitant]
     Active Substance: PROCHLORPERAZINE
     Indication: HEADACHE
     Dosage: EVERY FOUR HOURS
  14. RAMIPRIL. [Concomitant]
     Active Substance: RAMIPRIL

REACTIONS (7)
  - Road traffic accident [Unknown]
  - Injection site haemorrhage [Unknown]
  - Injection site pain [Unknown]
  - Pain [Unknown]
  - Intentional product misuse [Unknown]
  - Product quality issue [Unknown]
  - Multiple fractures [Unknown]

NARRATIVE: CASE EVENT DATE: 2007
